FAERS Safety Report 14513895 (Version 1)
Quarter: 2018Q1

REPORT INFORMATION
  Report Type: Spontaneous
  Country: US (occurrence: US)
  Receive Date: 20180208
  Receipt Date: 20180208
  Transmission Date: 20180509
  Serious: Yes (Disabling)
  Sender: FDA-Public Use
  Company Number: None

PATIENT
  Sex: Male
  Weight: 96.75 kg

DRUGS (5)
  1. ATORVOSTATIN [Concomitant]
     Active Substance: ATORVASTATIN
  2. CENTRUM SILVER MULTIVITAMINS [Concomitant]
  3. LEVOFLOXACIN. [Suspect]
     Active Substance: LEVOFLOXACIN
     Indication: KIDNEY INFECTION
     Dosage: ?          QUANTITY:14 TABLET(S);?
     Route: 042
     Dates: start: 20160516, end: 20160530
  4. WARFARIN [Concomitant]
     Active Substance: WARFARIN
  5. METOPROLOL TARTRATE. [Concomitant]
     Active Substance: METOPROLOL TARTRATE

REACTIONS (4)
  - Pain [None]
  - Dysstasia [None]
  - Arthralgia [None]
  - Pain in extremity [None]

NARRATIVE: CASE EVENT DATE: 20160516
